FAERS Safety Report 7974643-2 (Version None)
Quarter: 2011Q4

REPORT INFORMATION
  Report Type: 
  Country: None (occurrence: None)
  Receive Date: 20111213
  Receipt Date: 20111205
  Transmission Date: 20120403
  Serious: Yes (Hospitalization)
  Sender: FDA-Public Use
  Company Number: US-ACTELION-A-US2011-57689

PATIENT

DRUGS (5)
  1. EPOPROSTENOL SODIUM [Suspect]
     Indication: PULMONARY ARTERIAL HYPERTENSION
     Dosage: 18 NG/KG, PER MIN
     Route: 042
     Dates: start: 20110204
  2. TRACLEER [Suspect]
     Indication: PULMONARY ARTERIAL HYPERTENSION
     Dosage: UNK
     Route: 048
     Dates: start: 20070424
  3. SILDENAFIL [Concomitant]
  4. EPOPROSTENOL SODIUM [Suspect]
     Dosage: 25 NG/KG, PER MIN
     Route: 042
  5. ADCIRCA [Concomitant]

REACTIONS (3)
  - PYREXIA [None]
  - HYPOTENSION [None]
  - INFECTION [None]
